FAERS Safety Report 6133903-0 (Version None)
Quarter: 2009Q1

REPORT INFORMATION
  Report Type: 
  Country: None (occurrence: None)
  Receive Date: 20090326
  Receipt Date: 20090313
  Transmission Date: 20090719
  Serious: Yes (Other)
  Sender: FDA-Public Use
  Company Number: GR-ELI_LILLY_AND_COMPANY-GR200903003270

PATIENT
  Age: 50 Year
  Sex: Male

DRUGS (2)
  1. CYMBALTA [Suspect]
     Indication: PAIN IN EXTREMITY
     Dosage: 60 MG, DAILY (1/D)
     Route: 048
     Dates: start: 20090311, end: 20090311
  2. NEURONTIN [Concomitant]
     Indication: PAIN IN EXTREMITY
     Dosage: 400 MG, DAILY (1/D)
     Route: 048

REACTIONS (5)
  - CEREBROVASCULAR ACCIDENT [None]
  - FACIAL PARESIS [None]
  - HYPERHIDROSIS [None]
  - PARALYSIS [None]
  - TREMOR [None]
